FAERS Safety Report 5019826-9 (Version None)
Quarter: 2006Q2

REPORT INFORMATION
  Report Type: 
  Country: None (occurrence: None)
  Receive Date: 20060607
  Receipt Date: 20060531
  Transmission Date: 20061013
  Serious: Yes (Life-Threatening)
  Sender: FDA-Public Use
  Company Number: LV-NOVOPROD-253805

PATIENT
  Age: 39 Year
  Sex: Male

DRUGS (2)
  1. NOVORAPID [Suspect]
     Indication: DIABETES MELLITUS INSULIN-DEPENDENT
     Dosage: 100 IU, UNK
     Route: 058
     Dates: start: 20060529, end: 20060530
  2. LEVEMIR [Concomitant]
     Indication: DIABETES MELLITUS INSULIN-DEPENDENT
     Dosage: 20 IU
     Route: 058
     Dates: start: 20060401

REACTIONS (2)
  - HYPOGLYCAEMIC COMA [None]
  - SUICIDE ATTEMPT [None]
